FAERS Safety Report 7915755-9 (Version None)
Quarter: 2011Q4

REPORT INFORMATION
  Report Type: 
  Country: None (occurrence: None)
  Receive Date: 20111115
  Receipt Date: 20111031
  Transmission Date: 20120403
  Serious: No
  Sender: FDA-Public Use
  Company Number: US-B.I. PHARMACEUTICALS,INC./RIDGEFIELD-2011-BP-25326BP

PATIENT
  Sex: Male

DRUGS (15)
  1. PLAVIX [Concomitant]
     Indication: ATRIAL FIBRILLATION
  2. ENDURACIN [Concomitant]
     Indication: SUPPLEMENTATION THERAPY
  3. NORVASC [Concomitant]
     Indication: HYPERTENSION
  4. ASPIRIN [Concomitant]
     Indication: ROUTINE HEALTH MAINTENANCE
  5. THIAMINE HCL [Concomitant]
     Indication: SUPPLEMENTATION THERAPY
  6. PRADAXA [Suspect]
     Indication: ATRIAL FIBRILLATION
     Dosage: 300 MG
     Route: 048
     Dates: start: 20111010
  7. MULTI VITS [Concomitant]
     Indication: VITAMIN SUPPLEMENTATION
  8. ZOLOFT [Concomitant]
     Indication: DEPRESSION
  9. FINASTERIDE [Concomitant]
     Indication: URINARY TRACT DISORDER
  10. ISOSORBIDE DINITRATE [Concomitant]
     Indication: CARDIAC DISORDER
  11. GLIMEPIRIDE [Concomitant]
     Indication: DIABETES MELLITUS
  12. RANEXA [Concomitant]
     Indication: CARDIAC DISORDER
  13. LIPITOR [Concomitant]
     Indication: BLOOD CHOLESTEROL INCREASED
  14. FLOMAX [Concomitant]
     Indication: URINARY TRACT DISORDER
  15. METOPROLOL SUCCINATE [Concomitant]
     Indication: CARDIAC DISORDER

REACTIONS (2)
  - HAEMATURIA [None]
  - CALCULUS BLADDER [None]
